FAERS Safety Report 22328149 (Version 4)
Quarter: 2024Q1

REPORT INFORMATION
  Report Type: Report from Study
  Country: US (occurrence: US)
  Receive Date: 20230516
  Receipt Date: 20240127
  Transmission Date: 20240410
  Serious: Yes (Other)
  Sender: FDA-Public Use
  Company Number: US-ABBVIE-4768106

PATIENT
  Sex: Female

DRUGS (1)
  1. SKYRIZI [Suspect]
     Active Substance: RISANKIZUMAB-RZAA
     Indication: Psoriatic arthropathy
     Route: 058
     Dates: start: 20230207

REACTIONS (5)
  - Pulmonary fibrosis [Not Recovered/Not Resolved]
  - Contrast media allergy [Unknown]
  - Lung disorder [Unknown]
  - Interstitial lung disease [Unknown]
  - General symptom [Unknown]

NARRATIVE: CASE EVENT DATE: 20230101
